FAERS Safety Report 10164432 (Version 2)
Quarter: 2014Q2

REPORT INFORMATION
  Report Type: Spontaneous
  Country: US (occurrence: US)
  Receive Date: 20140510
  Receipt Date: 20140510
  Transmission Date: 20141212
  Serious: No
  Sender: FDA-Public Use
  Company Number: US200904003081

PATIENT
  Age: 55 Year
  Sex: Male
  Weight: 91.61 kg

DRUGS (14)
  1. BYETTA PEN DISPOSABLE [Suspect]
     Indication: TYPE 2 DIABETES MELLITUS
     Dosage: 10MG NOV08?LOT NO# A529849A EXP:FEB10?LOT NO#C17699A; EXP: JUN15
     Route: 058
     Dates: start: 200810, end: 200811
  2. EXENATIDE 5MCG PEN, DISPOSABLE DEVICE [Concomitant]
  3. EXENATIDE 10MCG PEN, DISPOSABLE DEVICE [Concomitant]
  4. EXENATIDE 10MCG PEN, DISPOSABLE DEVICE [Concomitant]
  5. GLYBURIDE [Concomitant]
     Indication: TYPE 2 DIABETES MELLITUS
     Route: 048
  6. GLYBURIDE [Concomitant]
     Indication: TYPE 2 DIABETES MELLITUS
     Route: 048
     Dates: end: 200904
  7. GLYBURIDE [Concomitant]
     Indication: TYPE 2 DIABETES MELLITUS
     Route: 048
     Dates: start: 200904
  8. PIOGLITAZONE [Concomitant]
     Indication: TYPE 2 DIABETES MELLITUS
     Route: 048
  9. VITAMIN K [Concomitant]
     Route: 048
  10. ASA [Concomitant]
     Route: 048
  11. GARLIC [Concomitant]
     Route: 048
  12. FOLIC ACID [Concomitant]
     Route: 048
  13. CENTRUM SILVER [Concomitant]
     Route: 048
  14. ANTACIDS [Concomitant]
     Indication: ABDOMINAL DISCOMFORT

REACTIONS (15)
  - Blood glucose decreased [Recovered/Resolved]
  - Visual impairment [Recovered/Resolved]
  - Fatigue [Recovered/Resolved]
  - Dry skin [Unknown]
  - Stress [Not Recovered/Not Resolved]
  - Poor quality sleep [Not Recovered/Not Resolved]
  - Laceration [Unknown]
  - Weight decreased [Unknown]
  - Dizziness [Recovered/Resolved]
  - Dyspepsia [Not Recovered/Not Resolved]
  - Nausea [Not Recovered/Not Resolved]
  - Abdominal discomfort [Not Recovered/Not Resolved]
  - Asthenia [Recovered/Resolved]
  - Influenza like illness [Unknown]
  - Diarrhoea [Unknown]
